FAERS Safety Report 7097290-6 (Version None)
Quarter: 2010Q4

REPORT INFORMATION
  Report Type: 
  Country: None (occurrence: None)
  Receive Date: 20101111
  Receipt Date: 20101028
  Transmission Date: 20110411
  Serious: Yes (Other)
  Sender: FDA-Public Use
  Company Number: MX-ELI_LILLY_AND_COMPANY-MX201009005471

PATIENT
  Age: 80 Year
  Sex: Female
  Weight: 50 kg

DRUGS (5)
  1. FORTEO [Suspect]
     Indication: OSTEOPOROSIS
     Dosage: 20 UG, DAILY (1/D)
     Route: 058
     Dates: start: 20100801
  2. TAFIROL [Concomitant]
     Indication: PAIN
     Dosage: 1 G, UNK
     Dates: start: 20100901
  3. PARACETAMOL [Concomitant]
     Indication: PAIN
     Dosage: 1 G, UNK
     Dates: start: 20100901
  4. AGIOLAX                                 /GFR/ [Concomitant]
     Indication: CONSTIPATION
     Dosage: 5 G, UNK
     Dates: start: 20100701
  5. TRIMEBUTINE [Concomitant]
     Indication: COLITIS
     Dosage: 200 MG, UNK

REACTIONS (4)
  - COLITIS [None]
  - INFLUENZA [None]
  - OEDEMA PERIPHERAL [None]
  - PAIN [None]
